FAERS Safety Report 16777386 (Version 2)
Quarter: 2019Q3

REPORT INFORMATION
  Report Type: Report from Study
  Country: US (occurrence: US)
  Receive Date: 20190905
  Receipt Date: 20190909
  Transmission Date: 20191005
  Serious: Yes (Death)
  Sender: FDA-Public Use
  Company Number: US-PFIZER INC-2019376853

PATIENT

DRUGS (5)
  1. PENICILLIN NOS [Concomitant]
     Active Substance: PENICILLIN
  2. BENZYLPENICILLIN POTASSIUM [Suspect]
     Active Substance: PENICILLIN G POTASSIUM
     Indication: CARDIAC VALVE ABSCESS
  3. STREPTOMYCIN [Suspect]
     Active Substance: STREPTOMYCIN SULFATE
     Indication: ENDOCARDITIS
     Dosage: 0.5 G, 2X/DAY
     Route: 030
  4. STREPTOMYCIN [Suspect]
     Active Substance: STREPTOMYCIN SULFATE
     Indication: CARDIAC VALVE ABSCESS
  5. BENZYLPENICILLIN POTASSIUM [Suspect]
     Active Substance: PENICILLIN G POTASSIUM
     Indication: ENDOCARDITIS
     Dosage: UNK (20 MU, INFREQUENTLY, QD (EVERY DAY)
     Route: 042

REACTIONS (1)
  - Drug ineffective [Fatal]
